FAERS Safety Report 4393326-1 (Version None)
Quarter: 2004Q3

REPORT INFORMATION
  Report Type: 
  Country: None (occurrence: None)
  Receive Date: 20040701
  Receipt Date: 20040624
  Transmission Date: 20050211
  Serious: Yes (Other)
  Sender: FDA-Public Use
  Company Number: 2004220487BR

PATIENT
  Sex: Female

DRUGS (1)
  1. DOSTINEX [Suspect]
     Indication: HYPERPROLACTINAEMIA
     Dosage: 0.5MG/WEEK, ORAL
     Route: 048
     Dates: start: 20040329, end: 20040517

REACTIONS (8)
  - ABDOMINAL PAIN UPPER [None]
  - BACK PAIN [None]
  - DYSPNOEA [None]
  - MYALGIA [None]
  - NASOPHARYNGEAL DISORDER [None]
  - OBSTRUCTION [None]
  - PREGNANCY [None]
  - THROAT TIGHTNESS [None]
